FAERS Safety Report 5969489-0 (Version None)
Quarter: 2008Q4

REPORT INFORMATION
  Report Type: 
  Country: None (occurrence: None)
  Receive Date: 20081126
  Receipt Date: 20080909
  Transmission Date: 20090506
  Serious: No
  Sender: FDA-Public Use
  Company Number: US-ABBOTT-08P-163-0475243-00

PATIENT
  Sex: Female
  Weight: 88.076 kg

DRUGS (5)
  1. SIMCOR [Suspect]
     Indication: BLOOD CHOLESTEROL ABNORMAL
     Dosage: 500/20MG AT BEDTIME
     Route: 048
     Dates: start: 20080801
  2. CLOPIDOGREL [Concomitant]
     Indication: DRUG USE FOR UNKNOWN INDICATION
  3. GLIMEPIRIDE [Concomitant]
     Indication: DRUG USE FOR UNKNOWN INDICATION
  4. LOSARTAN POTASSIUM [Concomitant]
     Indication: DRUG USE FOR UNKNOWN INDICATION
  5. METOPROLOL TARTRATE [Concomitant]
     Indication: DRUG USE FOR UNKNOWN INDICATION

REACTIONS (4)
  - ARTHRALGIA [None]
  - BLOOD GLUCOSE INCREASED [None]
  - DIARRHOEA [None]
  - MUSCLE SPASMS [None]
